FAERS Safety Report 8890764 (Version 2)
Quarter: 2017Q3

REPORT INFORMATION
  Report Type: Spontaneous
  Country: GB (occurrence: GB)
  Receive Date: 20121107
  Receipt Date: 20170802
  Transmission Date: 20171128
  Serious: Yes (Hospitalization)
  Sender: FDA-Public Use
  Company Number: GB-TEVA-367105ISR

PATIENT
  Age: 60 Year
  Sex: Male

DRUGS (21)
  1. ORAMORPH [Concomitant]
     Active Substance: MORPHINE SULFATE
  2. ISOSORBIDE MONONITRATE. [Suspect]
     Active Substance: ISOSORBIDE MONONITRATE
  3. ASPIRIN. [Suspect]
     Active Substance: ASPIRIN
     Route: 048
  4. ATORVASTATIN [Concomitant]
     Active Substance: ATORVASTATIN
  5. CANDESARTAN. [Concomitant]
     Active Substance: CANDESARTAN
  6. SALBUTAMOL [Concomitant]
     Active Substance: ALBUTEROL
  7. NIZATIDINE. [Concomitant]
     Active Substance: NIZATIDINE
  8. RIVAROXABAN [Concomitant]
     Active Substance: RIVAROXABAN
     Dates: start: 201207
  9. NICORANDIL [Suspect]
     Active Substance: NICORANDIL
     Route: 048
  10. PARACETAMOL [Concomitant]
     Active Substance: ACETAMINOPHEN
  11. GTN [Concomitant]
     Active Substance: NITROGLYCERIN
  12. BISOPROLOL [Concomitant]
     Active Substance: BISOPROLOL
  13. AMITRIPTYLINE [Concomitant]
     Active Substance: AMITRIPTYLINE
     Dates: start: 201207
  14. LIRAGLUTIDE [Concomitant]
     Active Substance: LIRAGLUTIDE
     Route: 058
  15. INSULIN [Concomitant]
     Active Substance: INSULIN NOS
     Dosage: INSULIN LISARD
     Route: 058
  16. MORPHINE SULPHATE [Concomitant]
     Active Substance: MORPHINE SULFATE
  17. GABAPENTIN. [Concomitant]
     Active Substance: GABAPENTIN
     Dates: start: 201207
  18. ETANERCEPT [Suspect]
     Active Substance: ETANERCEPT
     Indication: RHEUMATOID ARTHRITIS
     Route: 058
     Dates: start: 20120420, end: 20120519
  19. AMLODIPINE [Concomitant]
     Active Substance: AMLODIPINE BESYLATE
  20. FUROSEMIDE. [Concomitant]
     Active Substance: FUROSEMIDE
  21. PIZOTIFEN [Concomitant]
     Active Substance: PIZOTYLINE

REACTIONS (3)
  - Angina pectoris [Recovered/Resolved]
  - Drug ineffective [Unknown]
  - Tonsillar ulcer [Unknown]
